FAERS Safety Report 5907255-2 (Version None)
Quarter: 2008Q4

REPORT INFORMATION
  Report Type: 
  Country: None (occurrence: None)
  Receive Date: 20081003
  Receipt Date: 20080925
  Transmission Date: 20090506
  Serious: Yes (Other)
  Sender: FDA-Public Use
  Company Number: PHHY2008SI22619

PATIENT
  Age: 38 Year
  Sex: Female

DRUGS (1)
  1. SANDOSTATIN [Suspect]
     Indication: POSTOPERATIVE CARE
     Dosage: 0.5 MG, UNK
     Route: 058

REACTIONS (2)
  - ANXIETY [None]
  - TREMOR [None]
